FAERS Safety Report 7150552-6 (Version None)
Quarter: 2010Q4

REPORT INFORMATION
  Report Type: 
  Country: None (occurrence: None)
  Receive Date: 20101210
  Receipt Date: 20101130
  Transmission Date: 20110411
  Serious: Yes (Hospitalization)
  Sender: FDA-Public Use
  Company Number: ES-JNJFOC-20101201634

PATIENT
  Age: 37 Year
  Sex: Female

DRUGS (3)
  1. REMICADE [Suspect]
     Indication: SERONEGATIVE ARTHRITIS
     Route: 042
  2. METHOTREXATE [Concomitant]
  3. STEROIDS NOS [Concomitant]

REACTIONS (2)
  - PNEUMONIA [None]
  - VARICELLA [None]
